FAERS Safety Report 4877974-8 (Version None)
Quarter: 2005Q4

REPORT INFORMATION
  Report Type: 
  Country: None (occurrence: None)
  Receive Date: 20051206
  Receipt Date: 20050909
  Transmission Date: 20060501
  Serious: No
  Sender: FDA-Public Use
  Company Number: USA0509107425

PATIENT
  Age: 77 Year
  Sex: Male

DRUGS (1)
  1. CYMBALTA [Suspect]
     Dosage: 60 MG DAY
     Dates: start: 20050801

REACTIONS (5)
  - ERECTILE DYSFUNCTION [None]
  - FLUSHING [None]
  - INTESTINAL FUNCTIONAL DISORDER [None]
  - SEXUAL DYSFUNCTION [None]
  - URINARY RETENTION [None]
